FAERS Safety Report 9490421 (Version 2)
Quarter: 2014Q1

REPORT INFORMATION
  Report Type: Spontaneous
  Country: US (occurrence: US)
  Receive Date: 20130830
  Receipt Date: 20140103
  Transmission Date: 20141002
  Serious: No
  Sender: FDA-Public Use
  Company Number: US-009507513-1308USA004862

PATIENT
  Age: 21 Year
  Sex: Female
  Weight: 49.43 kg

DRUGS (2)
  1. NEXPLANON [Suspect]
     Indication: CONTRACEPTION
     Dosage: 1 DF, UNK
     Route: 059
     Dates: start: 20130802, end: 20130806
  2. NEXPLANON [Suspect]
     Dosage: UNK
     Route: 059
     Dates: start: 201309

REACTIONS (1)
  - Pain in extremity [Not Recovered/Not Resolved]
